FAERS Safety Report 20348219 (Version 6)
Quarter: 2022Q4

REPORT INFORMATION
  Report Type: Report from Study
  Country: US (occurrence: US)
  Receive Date: 20220119
  Receipt Date: 20221109
  Transmission Date: 20230113
  Serious: Yes (Other)
  Sender: FDA-Public Use
  Company Number: US-ABBVIE-22K-163-4238236-00

PATIENT
  Age: 52 Year
  Sex: Male

DRUGS (4)
  1. SKYRIZI [Suspect]
     Active Substance: RISANKIZUMAB-RZAA
     Indication: Psoriasis
     Route: 058
  2. SKYRIZI [Suspect]
     Active Substance: RISANKIZUMAB-RZAA
     Indication: Psoriatic arthropathy
     Route: 058
  3. SKYRIZI [Suspect]
     Active Substance: RISANKIZUMAB-RZAA
     Route: 058
     Dates: start: 20200109
  4. JANSSEN COVID-19 VACCINE [Suspect]
     Active Substance: AD26.COV2.S
     Indication: COVID-19 immunisation
     Dosage: TIME INTERVAL: 1 TOTAL: JOHNSON AND JOHNSON 1ST DOSE
     Route: 030
     Dates: start: 20210512, end: 20210512

REACTIONS (15)
  - Basal cell carcinoma [Recovered/Resolved]
  - Adverse drug reaction [Recovered/Resolved]
  - Psoriasis [Recovered/Resolved]
  - Wrong technique in product usage process [Unknown]
  - Unevaluable event [Recovered/Resolved]
  - Urticaria [Not Recovered/Not Resolved]
  - Rash [Recovered/Resolved]
  - Injection site pain [Recovered/Resolved]
  - Fatigue [Recovered/Resolved]
  - Headache [Unknown]
  - Blood triglycerides increased [Not Recovered/Not Resolved]
  - Therapeutic response shortened [Not Recovered/Not Resolved]
  - Chills [Unknown]
  - Hyperhidrosis [Unknown]
  - Vaccination site pain [Unknown]

NARRATIVE: CASE EVENT DATE: 20211101
